FAERS Safety Report 11822097 (Version 1)
Quarter: 2015Q4

REPORT INFORMATION
  Report Type: Spontaneous
  Country: US (occurrence: US)
  Receive Date: 20151210
  Receipt Date: 20151210
  Transmission Date: 20160305
  Serious: Yes (Hospitalization)
  Sender: FDA-Public Use
  Company Number: US-JNJFOC-20150720665

PATIENT
  Age: 67 Year
  Sex: Male

DRUGS (7)
  1. IMBRUVICA [Suspect]
     Active Substance: IBRUTINIB
     Indication: NEOPLASM MALIGNANT
     Route: 048
     Dates: start: 20140503, end: 2015
  2. LEVAQUIN [Concomitant]
     Active Substance: LEVOFLOXACIN
  3. IBUPROFEN. [Concomitant]
     Active Substance: IBUPROFEN
  4. IMBRUVICA [Suspect]
     Active Substance: IBRUTINIB
     Indication: NEOPLASM MALIGNANT
     Route: 048
     Dates: start: 2015
  5. TEMAZEPAM. [Concomitant]
     Active Substance: TEMAZEPAM
  6. CEPHALEXIN. [Concomitant]
     Active Substance: CEPHALEXIN
  7. ZOLPIDEM [Concomitant]
     Active Substance: ZOLPIDEM\ZOLPIDEM TARTRATE

REACTIONS (6)
  - Rash [Unknown]
  - Blister [Unknown]
  - Furuncle [Unknown]
  - Off label use [Unknown]
  - Pyrexia [Unknown]
  - Product use issue [Unknown]

NARRATIVE: CASE EVENT DATE: 2015
